FAERS Safety Report 7507116-1 (Version None)
Quarter: 2011Q2

REPORT INFORMATION
  Report Type: 
  Country: None (occurrence: None)
  Receive Date: 20110526
  Receipt Date: 20110513
  Transmission Date: 20111010
  Serious: Yes (Death, Other)
  Sender: FDA-Public Use
  Company Number: ES-CELGENEUS-144-21880-10112127

PATIENT
  Age: 87 Year
  Sex: Female

DRUGS (3)
  1. REVLIMID [Suspect]
     Indication: MULTIPLE MYELOMA
     Dosage: OR 10 MG
     Route: 048
     Dates: start: 20100101, end: 20100601
  2. DEXAMETHASONE [Concomitant]
     Indication: MULTIPLE MYELOMA
     Route: 065
     Dates: start: 20110101
  3. MELPHALAN HYDROCHLORIDE [Concomitant]
     Indication: MULTIPLE MYELOMA
     Route: 065
     Dates: start: 20110101

REACTIONS (3)
  - MULTIPLE MYELOMA [None]
  - PANCYTOPENIA [None]
  - BLINDNESS [None]
